FAERS Safety Report 7956398-0 (Version None)
Quarter: 2011Q4

REPORT INFORMATION
  Report Type: 
  Country: None (occurrence: None)
  Receive Date: 20111205
  Receipt Date: 20111130
  Transmission Date: 20120403
  Serious: Yes (Other)
  Sender: FDA-Public Use
  Company Number: DE-PFIZER INC-2011291676

PATIENT
  Age: 72 Year
  Sex: Male

DRUGS (1)
  1. NEURONTIN [Suspect]
     Dosage: 900 MG, UNK
     Dates: end: 20111101

REACTIONS (8)
  - SOMNOLENCE [None]
  - ATAXIA [None]
  - THINKING ABNORMAL [None]
  - BALANCE DISORDER [None]
  - APHASIA [None]
  - FALL [None]
  - TREMOR [None]
  - MEMORY IMPAIRMENT [None]
